FAERS Safety Report 8309055-5 (Version None)
Quarter: 2012Q2

REPORT INFORMATION
  Report Type: 
  Country: None (occurrence: None)
  Receive Date: 20120424
  Receipt Date: 20120412
  Transmission Date: 20120825
  Serious: Yes (Life-Threatening, Congenital Anomaly)
  Sender: FDA-Public Use
  Company Number: FR-ROCHE-503045

PATIENT
  Sex: Female
  Weight: 3.1 kg

DRUGS (2)
  1. VALIUM [Suspect]
     Indication: NECK PAIN
     Route: 064
     Dates: start: 20060514, end: 20060618
  2. VALIUM [Suspect]
     Route: 064

REACTIONS (3)
  - COARCTATION OF THE AORTA [None]
  - VENTRICULAR SEPTAL DEFECT [None]
  - AORTIC STENOSIS [None]
